FAERS Safety Report 21377672 (Version 3)
Quarter: 2022Q4

REPORT INFORMATION
  Report Type: Spontaneous
  Country: US (occurrence: US)
  Receive Date: 20220926
  Receipt Date: 20221114
  Transmission Date: 20230113
  Serious: Yes (Other)
  Sender: FDA-Public Use
  Company Number: US-PFIZER INC-202201183278

PATIENT
  Sex: Female

DRUGS (3)
  1. FENTANYL CITRATE [Suspect]
     Active Substance: FENTANYL CITRATE
     Indication: Medical procedure
     Dosage: 100 UG
     Dates: start: 20170831
  2. VERSED [Suspect]
     Active Substance: MIDAZOLAM HYDROCHLORIDE
     Indication: Medical procedure
     Dosage: 6 MG, 6 SHOTS
     Dates: start: 20170831
  3. VERSED [Suspect]
     Active Substance: MIDAZOLAM HYDROCHLORIDE
     Indication: Muscle relaxant therapy

REACTIONS (2)
  - Drug ineffective [Unknown]
  - Post-traumatic stress disorder [Unknown]
